FAERS Safety Report 8212534-2 (Version None)
Quarter: 2012Q1

REPORT INFORMATION
  Report Type: 
  Country: None (occurrence: None)
  Receive Date: 20120315
  Receipt Date: 20120309
  Transmission Date: 20120608
  Serious: Yes (Hospitalization)
  Sender: FDA-Public Use
  Company Number: BG-GLAXOSMITHKLINE-Z0013304A

PATIENT
  Sex: Male
  Weight: 72 kg

DRUGS (5)
  1. FRAXIPARINE [Concomitant]
     Indication: EPILEPSY
     Dosage: .4MG PER DAY
     Route: 042
     Dates: start: 20111213, end: 20111216
  2. DIAZEPAM [Concomitant]
     Indication: EPILEPSY
     Dosage: 10MG PER DAY
     Dates: start: 20111213, end: 20111213
  3. LEVETIRACETAM [Concomitant]
     Indication: PARTIAL SEIZURES
     Dosage: 1000MG TWICE PER DAY
     Route: 048
     Dates: start: 20111213, end: 20111226
  4. MIDAZOLAM HCL [Concomitant]
     Indication: EPILEPSY
     Dosage: 5MG PER DAY
     Route: 042
     Dates: start: 20111213, end: 20111213
  5. RETIGABINE [Suspect]
     Indication: PARTIAL SEIZURES
     Route: 048
     Dates: start: 20111129, end: 20111213

REACTIONS (1)
  - GRAND MAL CONVULSION [None]
